FAERS Safety Report 5949761-0 (Version None)
Quarter: 2008Q4

REPORT INFORMATION
  Report Type: 
  Country: None (occurrence: None)
  Receive Date: 20081029
  Receipt Date: 20080124
  Transmission Date: 20090506
  Serious: Yes (Other)
  Sender: FDA-Public Use
  Company Number: SPV1-2008-00146

PATIENT
  Age: 9 Year
  Sex: Male
  Weight: 54.4 kg

DRUGS (2)
  1. VYVANSE [Suspect]
     Indication: ATTENTION DEFICIT/HYPERACTIVITY DISORDER
     Dosage: 30 MG, 1X/DAY:QD, ORAL
     Route: 048
     Dates: start: 20070807, end: 20070901
  2. DAYTRANA [Concomitant]

REACTIONS (6)
  - AGGRESSION [None]
  - ANGER [None]
  - CONDITION AGGRAVATED [None]
  - IRRITABILITY [None]
  - PHYSICAL ASSAULT [None]
  - SUICIDAL IDEATION [None]
